FAERS Safety Report 4506534-3 (Version None)
Quarter: 2004Q4

REPORT INFORMATION
  Report Type: 
  Country: None (occurrence: None)
  Receive Date: 20041122
  Receipt Date: 20041117
  Transmission Date: 20050328
  Serious: Yes (Death)
  Sender: FDA-Public Use
  Company Number: US-JNJFOC-20041104715

PATIENT
  Age: 65 Year
  Sex: Female

DRUGS (1)
  1. DURAGESIC [Suspect]
     Indication: CANCER PAIN
     Route: 062

REACTIONS (1)
  - MALIGNANT NEOPLASM PROGRESSION [None]
